FAERS Safety Report 4384711-2 (Version None)
Quarter: 2004Q2

REPORT INFORMATION
  Report Type: 
  Country: None (occurrence: None)
  Receive Date: 20040621
  Receipt Date: 20040609
  Transmission Date: 20050107
  Serious: Yes (Death)
  Sender: FDA-Public Use
  Company Number: 2004IC000178

PATIENT
  Age: 54 Year
  Sex: Male

DRUGS (5)
  1. FLUOROURACIL [Suspect]
     Indication: COLON CANCER
     Dosage: 750 MG; INTRAVENOUS
     Route: 042
     Dates: start: 20040416, end: 20040507
  2. LEUCOVORIN CALCIUM [Concomitant]
     Indication: COLON CANCER
     Dosage: 300 MG ; INTRAVENOUS DRIP
     Route: 041
     Dates: start: 20040416, end: 20040507
  3. GLYBURIDE [Concomitant]
  4. AMOBAN [Concomitant]
  5. INSULIN [Concomitant]

REACTIONS (6)
  - CARDIAC ARREST [None]
  - CARDIAC FAILURE [None]
  - HYPERGLYCAEMIA [None]
  - LEUKOPENIA [None]
  - MALAISE [None]
  - SUDDEN DEATH [None]
